FAERS Safety Report 5668390-X (Version None)
Quarter: 2008Q1

REPORT INFORMATION
  Report Type: 
  Country: None (occurrence: None)
  Receive Date: 20080315
  Receipt Date: 20080223
  Transmission Date: 20080703
  Serious: No
  Sender: FDA-Public Use
  Company Number: US-ABBOTT-08P-163-0439765-00

PATIENT
  Age: 18 Year
  Sex: Male
  Weight: 78.996 kg

DRUGS (2)
  1. HUMIRA [Suspect]
     Indication: CROHN'S DISEASE
     Route: 058
     Dates: start: 20071001
  2. UNKNOWN MEDICATIONS [Concomitant]
     Indication: DRUG USE FOR UNKNOWN INDICATION

REACTIONS (7)
  - COUGH [None]
  - FATIGUE [None]
  - PAIN [None]
  - PHARYNGEAL ABSCESS [None]
  - POSTNASAL DRIP [None]
  - SEASONAL ALLERGY [None]
  - SINUSITIS [None]
